FAERS Safety Report 26100401 (Version 1)
Quarter: 2025Q4

REPORT INFORMATION
  Report Type: Spontaneous
  Country: KR (occurrence: KR)
  Receive Date: 20251128
  Receipt Date: 20251128
  Transmission Date: 20260118
  Serious: Yes (Other)
  Sender: ALKEM
  Company Number: KR-ALKEM LABORATORIES LIMITED-KR-ALKEM-2025-12820

PATIENT
  Age: 15 Month
  Sex: Male
  Weight: 3.7 kg

DRUGS (1)
  1. LIDOCAINE [Suspect]
     Active Substance: LIDOCAINE
     Indication: Haemostasis
     Dosage: 100 MILLIGRAM (INFUSION)
     Route: 058

REACTIONS (3)
  - Neurotoxicity [Unknown]
  - Local anaesthetic systemic toxicity [Unknown]
  - Overdose [Unknown]
